FAERS Safety Report 19496204 (Version 1)
Quarter: 2021Q3

REPORT INFORMATION
  Report Type: Spontaneous
  Country: US (occurrence: US)
  Receive Date: 20210706
  Receipt Date: 20210706
  Transmission Date: 20211014
  Serious: Yes (Hospitalization)
  Sender: FDA-Public Use
  Company Number: US-ROCHE-2861924

PATIENT
  Sex: Female

DRUGS (7)
  1. OMEPRAZOLE. [Concomitant]
     Active Substance: OMEPRAZOLE
  2. FLONASE [Concomitant]
     Active Substance: FLUTICASONE PROPIONATE
  3. ALBUTEROL. [Concomitant]
     Active Substance: ALBUTEROL
  4. FLOVENT [Concomitant]
     Active Substance: FLUTICASONE PROPIONATE
  5. LOSARTAN. [Concomitant]
     Active Substance: LOSARTAN
  6. XOLAIR [Suspect]
     Active Substance: OMALIZUMAB
     Indication: IDIOPATHIC URTICARIA
     Route: 058
     Dates: start: 20210429
  7. MONTELUKAST [Concomitant]
     Active Substance: MONTELUKAST SODIUM

REACTIONS (13)
  - Arthralgia [Unknown]
  - Peripheral swelling [Unknown]
  - Photosensitivity reaction [Unknown]
  - Swelling face [Unknown]
  - Ear pain [Unknown]
  - Chest pain [Unknown]
  - Pruritus [Unknown]
  - Urticaria [Unknown]
  - Chest discomfort [Unknown]
  - Dyspnoea [Unknown]
  - Headache [Unknown]
  - Ill-defined disorder [Unknown]
  - Dizziness [Unknown]
